FAERS Safety Report 9424322 (Version 2)
Quarter: 2013Q4

REPORT INFORMATION
  Report Type: Spontaneous
  Country: FR (occurrence: FR)
  Receive Date: 20130724
  Receipt Date: 20131017
  Transmission Date: 20140711
  Serious: Yes (Hospitalization)
  Sender: FDA-Public Use
  Company Number: DSM-2013-00673

PATIENT
  Age: 75 Year
  Sex: Male

DRUGS (6)
  1. OLMETEC [Suspect]
     Indication: HYPERTENSION
     Route: 048
     Dates: start: 201304, end: 201306
  2. DUOPLAVIN [Suspect]
     Indication: PRODUCT USED FOR UNKNOWN INDICATION
     Dates: start: 201304, end: 201306
  3. PROCORALAN [Suspect]
     Indication: PRODUCT USED FOR UNKNOWN INDICATION
     Dates: end: 201304
  4. PRAVADUAL [Suspect]
     Indication: PRODUCT USED FOR UNKNOWN INDICATION
     Dates: end: 201304
  5. COTAREG [Suspect]
     Indication: PRODUCT USED FOR UNKNOWN INDICATION
     Dates: end: 201304
  6. TEMERIT (NEBIVOLOL)(NEBIVOLOL) [Concomitant]

REACTIONS (2)
  - Toxic skin eruption [None]
  - Eczema [None]
